FAERS Safety Report 23482195 (Version 4)
Quarter: 2024Q2

REPORT INFORMATION
  Report Type: Spontaneous
  Country: US (occurrence: US)
  Receive Date: 20240205
  Receipt Date: 20240531
  Transmission Date: 20240715
  Serious: Yes (Hospitalization)
  Sender: FDA-Public Use
  Company Number: US-PFIZER INC-PV202400014834

PATIENT
  Age: 74 Year
  Sex: Female
  Weight: 97.506 kg

DRUGS (3)
  1. IBRANCE [Suspect]
     Active Substance: PALBOCICLIB
     Indication: Breast cancer recurrent
     Dosage: 125 MG
     Dates: start: 202306
  2. FULVESTRANT [Concomitant]
     Active Substance: FULVESTRANT
     Dosage: 125 MG EACH HIP MONTHLY
     Route: 030
     Dates: end: 202304
  3. FULVESTRANT [Concomitant]
     Active Substance: FULVESTRANT
     Dosage: UNK
     Dates: start: 202306

REACTIONS (3)
  - Vomiting [Unknown]
  - Skin odour abnormal [Recovered/Resolved]
  - Alopecia [Recovering/Resolving]
